APPROVED DRUG PRODUCT: DICYCLOMINE HYDROCHLORIDE
Active Ingredient: DICYCLOMINE HYDROCHLORIDE
Strength: 10MG/ML
Dosage Form/Route: INJECTABLE;INJECTION
Application: A080614 | Product #001
Applicant: DR REDDYS LABORATORIES LTD
Approved: Feb 11, 1986 | RLD: No | RS: No | Type: DISCN